FAERS Safety Report 17889823 (Version 1)
Quarter: 2020Q2

REPORT INFORMATION
  Report Type: Spontaneous
  Country: FR (occurrence: FR)
  Receive Date: 20200612
  Receipt Date: 20200612
  Transmission Date: 20200714
  Serious: Yes (Death, Hospitalization, Other)
  Sender: FDA-Public Use
  Company Number: NVSC2020FR162168

PATIENT
  Age: 65 Year
  Sex: Female

DRUGS (1)
  1. KYMRIAH [Suspect]
     Active Substance: TISAGENLECLEUCEL
     Indication: DIFFUSE LARGE B-CELL LYMPHOMA
     Dosage: UNK
     Route: 065
     Dates: start: 20180827

REACTIONS (11)
  - Death [Fatal]
  - Mass [Unknown]
  - Haemorrhage [Unknown]
  - Abdominal pain [Unknown]
  - Melaena [Unknown]
  - Aplasia [Unknown]
  - Vomiting [Unknown]
  - Cytokine release syndrome [Unknown]
  - Pyrexia [Unknown]
  - Nausea [Unknown]
  - Haematemesis [Unknown]

NARRATIVE: CASE EVENT DATE: 20190907
